FAERS Safety Report 9207856 (Version 1)
Quarter: 2013Q2

REPORT INFORMATION
  Report Type: Spontaneous
  Country: BE (occurrence: BE)
  Receive Date: 20130403
  Receipt Date: 20130403
  Transmission Date: 20140414
  Serious: Yes (Disabling)
  Sender: FDA-Public Use
  Company Number: BE-GLAXOSMITHKLINE-B0876534A

PATIENT
  Age: 49 Year
  Sex: Female
  Weight: 56 kg

DRUGS (3)
  1. VOTRIENT [Suspect]
     Indication: SARCOMA
     Dosage: 800MG PER DAY
     Route: 048
     Dates: start: 20130118
  2. MOTILIUM [Concomitant]
     Route: 048
     Dates: start: 20130118
  3. LITICAN [Concomitant]
     Route: 048
     Dates: start: 20130118

REACTIONS (2)
  - Vaginal ulceration [Recovering/Resolving]
  - Pain [Unknown]
